FAERS Safety Report 8084264 (Version 3)
Quarter: 2013Q3

REPORT INFORMATION
  Report Type: Spontaneous
  Country: US (occurrence: US)
  Receive Date: 20110810
  Receipt Date: 20130731
  Transmission Date: 20140515
  Serious: Yes (Death, Hospitalization)
  Sender: FDA-Public Use
  Company Number: US-GLAXOSMITHKLINE-A0817989A

PATIENT
  Age: 87 Year
  Sex: Female
  Weight: 68.2 kg

DRUGS (2)
  1. AVANDIA [Suspect]
     Indication: DIABETES MELLITUS
     Route: 048
     Dates: start: 20051201, end: 2006
  2. AVANDAMET [Suspect]
     Route: 048

REACTIONS (6)
  - Septic shock [Fatal]
  - Myocardial infarction [Unknown]
  - Cardiac failure congestive [Unknown]
  - Cerebrovascular accident [Unknown]
  - Atrial fibrillation [Fatal]
  - Hypertrophic cardiomyopathy [Unknown]
